FAERS Safety Report 8022450-7 (Version None)
Quarter: 2012Q1

REPORT INFORMATION
  Report Type: 
  Country: None (occurrence: None)
  Receive Date: 20120104
  Receipt Date: 20110609
  Transmission Date: 20120608
  Serious: No
  Sender: FDA-Public Use
  Company Number: US-MYLANLABS-2011S1010295

PATIENT
  Age: 70 Year
  Sex: Male
  Weight: 86.18 kg

DRUGS (4)
  1. OXYCODONE HCL [Concomitant]
     Indication: PAIN
  2. KETOCONAZOLE [Suspect]
     Indication: PROSTATE CANCER
     Dosage: 3 TAB Q8H
     Route: 048
     Dates: start: 20040101, end: 20110101
  3. URSODIOL [Concomitant]
  4. LEUKINE [Concomitant]
     Route: 030

REACTIONS (4)
  - DRUG INEFFECTIVE FOR UNAPPROVED INDICATION [None]
  - FATIGUE [None]
  - DIARRHOEA [None]
  - PROSTATIC SPECIFIC ANTIGEN INCREASED [None]
